FAERS Safety Report 20966629 (Version 2)
Quarter: 2022Q4

REPORT INFORMATION
  Report Type: Spontaneous
  Country: CA (occurrence: CA)
  Receive Date: 20220616
  Receipt Date: 20221013
  Transmission Date: 20230113
  Serious: Yes (Hospitalization, Other)
  Sender: FDA-Public Use
  Company Number: CA-BRISTOL-MYERS SQUIBB COMPANY-2022-054553

PATIENT
  Age: 77 Year
  Sex: Female

DRUGS (2)
  1. IPILIMUMAB [Suspect]
     Active Substance: IPILIMUMAB
     Indication: Metastatic renal cell carcinoma
     Route: 042
  2. NIVOLUMAB [Suspect]
     Active Substance: NIVOLUMAB
     Indication: Metastatic renal cell carcinoma
     Dosage: DOSAGE FORM OF ADMIN: SOLUTION INTRAVENOUS; FREQUENCY: 1 EVERY 3 WEEKS
     Route: 042

REACTIONS (6)
  - Myocarditis [Unknown]
  - Pulmonary hypertension [Unknown]
  - Hospitalisation [Unknown]
  - Drug interaction [Unknown]
  - Pruritus [Unknown]
  - Urticaria [Unknown]
